FAERS Safety Report 8480778 (Version 2)
Quarter: 2013Q1

REPORT INFORMATION
  Report Type: Spontaneous
  Country: US (occurrence: US)
  Receive Date: 20120328
  Receipt Date: 20130103
  Transmission Date: 20140127
  Serious: Yes (Other)
  Sender: FDA-Public Use
  Company Number: US-PFIZER INC-2012074384

PATIENT
  Sex: 0

DRUGS (2)
  1. EFFEXOR XR [Suspect]
     Dosage: UNK
  2. VENLAFAXINE HYDROCHLORIDE [Suspect]
     Dosage: UNK

REACTIONS (4)
  - Impaired work ability [Unknown]
  - Activities of daily living impaired [Unknown]
  - Malaise [Unknown]
  - Drug ineffective [Unknown]
